FAERS Safety Report 9457880 (Version 2)
Quarter: 2013Q4

REPORT INFORMATION
  Report Type: Spontaneous
  Country: US (occurrence: US)
  Receive Date: 20130814
  Receipt Date: 20131126
  Transmission Date: 20140711
  Serious: Yes (Other)
  Sender: FDA-Public Use
  Company Number: US-BAYER-2013-097827

PATIENT
  Age: 28 Year
  Sex: Female
  Weight: 57.14 kg

DRUGS (2)
  1. MIRENA [Suspect]
     Indication: CONTRACEPTION
     Dosage: 20 MCG/24HR, CONT
     Route: 015
     Dates: start: 20130206, end: 20130809
  2. LIDOCAINE [Concomitant]
     Indication: ANAESTHESIA PROCEDURE

REACTIONS (2)
  - Uterine perforation [Recovered/Resolved]
  - Abdominal pain [Recovered/Resolved]
